FAERS Safety Report 8887510 (Version 2)
Quarter: 2013Q2

REPORT INFORMATION
  Report Type: Spontaneous
  Country: GB (occurrence: None)
  Receive Date: 20121031
  Receipt Date: 20130604
  Transmission Date: 20140414
  Serious: Yes (Other)
  Sender: FDA-Public Use
  Company Number: GB-022936

PATIENT
  Age: 7 Year
  Sex: 0

DRUGS (2)
  1. BUSULFAN [Suspect]
     Indication: BONE MARROW CONDITIONING REGIMEN
     Dosage: 2-4 MG/KG/DAY?ON DAYS -9 TO -6
  2. CYCLOPHOSPHAMIDE (CYCLOPHOSPHAMIDE) [Suspect]
     Indication: BONE MARROW CONDITIONING REGIMEN
     Dosage: 50 MG/KG/DAY?ON DAYS -5 TO -1

REACTIONS (5)
  - Tooth hypoplasia [None]
  - Tooth erosion [None]
  - Dental caries [None]
  - Toxicity to various agents [None]
  - Micrognathia [None]
